FAERS Safety Report 7506789-7 (Version None)
Quarter: 2011Q2

REPORT INFORMATION
  Report Type: 
  Country: None (occurrence: None)
  Receive Date: 20110526
  Receipt Date: 20100930
  Transmission Date: 20111010
  Serious: Yes (Hospitalization, Congenital Anomaly)
  Sender: FDA-Public Use
  Company Number: A0884623A

PATIENT
  Sex: Male

DRUGS (1)
  1. PAROXETINE HYDROCHLORIDE [Suspect]
     Dosage: 20MG TWICE PER DAY
     Route: 064

REACTIONS (12)
  - RENAL DYSPLASIA [None]
  - PULMONARY VALVE STENOSIS CONGENITAL [None]
  - BICUSPID AORTIC VALVE [None]
  - HEART VALVE INCOMPETENCE [None]
  - VESICOURETERIC REFLUX [None]
  - DRUG EXPOSURE DURING PREGNANCY [None]
  - LEFT VENTRICLE OUTFLOW TRACT OBSTRUCTION [None]
  - CONGENITAL AORTIC ANOMALY [None]
  - CONGENITAL HEPATIC FIBROSIS [None]
  - RENAL FAILURE CHRONIC [None]
  - CONGENITAL AORTIC STENOSIS [None]
  - HEPATIC FUNCTION ABNORMAL [None]
